FAERS Safety Report 15460653 (Version 1)
Quarter: 2018Q4

REPORT INFORMATION
  Report Type: Spontaneous
  Country: IT (occurrence: IT)
  Receive Date: 20181003
  Receipt Date: 20181003
  Transmission Date: 20190204
  Serious: Yes (Hospitalization)
  Sender: FDA-Public Use
  Company Number: IT-TEVA-2018-IT-960757

PATIENT
  Age: 21 Year
  Sex: Male

DRUGS (5)
  1. DEPAKIN [Concomitant]
     Active Substance: VALPROATE SODIUM
     Route: 048
     Dates: start: 20180816, end: 20180823
  2. INVEGA 6 MG PROLONGED-RELEASE TABLETS [Concomitant]
     Route: 065
  3. TAVOR 4 MG/ML SOLUZIONE INIETTABILE [Concomitant]
     Route: 065
     Dates: start: 20180812, end: 20180819
  4. OLANZAPINA TEVA [Suspect]
     Active Substance: OLANZAPINE
     Indication: MANIA
     Route: 065
     Dates: start: 20180812, end: 20180823
  5. ABILIFY 7.5 MG/ML SOLUTION FOR INJECTION [Concomitant]
     Dates: start: 20180812, end: 20180815

REACTIONS (1)
  - Therapy non-responder [Unknown]

NARRATIVE: CASE EVENT DATE: 20180819
